FAERS Safety Report 7307245-1 (Version None)
Quarter: 2011Q1

REPORT INFORMATION
  Report Type: 
  Country: None (occurrence: None)
  Receive Date: 20110223
  Receipt Date: 20110215
  Transmission Date: 20110831
  Serious: No
  Sender: FDA-Public Use
  Company Number: US-PFIZER INC-2011033726

PATIENT
  Sex: Male
  Weight: 90.703 kg

DRUGS (7)
  1. CELEBREX [Suspect]
     Indication: SPINAL OSTEOARTHRITIS
     Dosage: 400 MG, 1X/DAY
     Dates: start: 20060101
  2. KLONOPIN [Concomitant]
     Indication: ANXIETY
     Dosage: 1 MG, 1X/DAY
     Route: 048
  3. TAMSULOSIN HYDROCHLORIDE [Concomitant]
     Indication: PROSTATOMEGALY
     Dosage: 4 MG, 1X/DAY
     Route: 048
  4. WELLBUTRIN XL [Concomitant]
     Indication: DEPRESSION
     Dosage: 300 MG, 1X/DAY
     Route: 048
  5. CELEBREX [Suspect]
     Dosage: 200 MG, 1X/DAY
     Route: 048
     Dates: end: 20110101
  6. ATENOLOL [Concomitant]
     Indication: BLOOD PRESSURE ABNORMAL
     Dosage: 10 MG, 1X/DAY
  7. ZYPREXA [Concomitant]
     Indication: BIPOLAR DISORDER
     Dosage: 2.5 MG, 1X/DAY
     Route: 048

REACTIONS (4)
  - STRESS [None]
  - GASTRITIS [None]
  - GASTRIC DISORDER [None]
  - PAIN [None]
